FAERS Safety Report 25011791 (Version 1)
Quarter: 2025Q1

REPORT INFORMATION
  Report Type: Spontaneous
  Country: SG (occurrence: SG)
  Receive Date: 20250226
  Receipt Date: 20250226
  Transmission Date: 20250409
  Serious: Yes (Other)
  Sender: GRIFOLS
  Company Number: SG-IGSA-BIG0032967

PATIENT
  Sex: Female

DRUGS (1)
  1. HUMAN IMMUNOGLOBULIN G [Suspect]
     Active Substance: HUMAN IMMUNOGLOBULIN G
     Indication: Guillain-Barre syndrome

REACTIONS (4)
  - Reversible cerebral vasoconstriction syndrome [Recovered/Resolved]
  - Headache [Recovered/Resolved]
  - Blood pressure fluctuation [Recovered/Resolved]
  - Hemiparesis [Recovered/Resolved]
